FAERS Safety Report 8269792-8 (Version None)
Quarter: 2012Q2

REPORT INFORMATION
  Report Type: 
  Country: None (occurrence: None)
  Receive Date: 20120406
  Receipt Date: 20120324
  Transmission Date: 20120825
  Serious: Yes (Hospitalization)
  Sender: FDA-Public Use
  Company Number: 2012AP000822

PATIENT
  Age: 23 Month
  Sex: Male

DRUGS (4)
  1. HYDROCHLORIDE [Concomitant]
  2. ENALAPRIL MALEATE [Suspect]
     Indication: HYPERTENSION
  3. RANITIDINE [Concomitant]
  4. FLUTICASONE PROPIONATE [Concomitant]

REACTIONS (6)
  - RESPIRATORY DISTRESS [None]
  - ANAPHYLACTIC REACTION [None]
  - VIRAL INFECTION [None]
  - HYPOTENSION [None]
  - ANGIOEDEMA [None]
  - STRIDOR [None]
